FAERS Safety Report 7685820-2 (Version None)
Quarter: 2011Q3

REPORT INFORMATION
  Report Type: 
  Country: None (occurrence: None)
  Receive Date: 20110816
  Receipt Date: 20110803
  Transmission Date: 20111222
  Serious: Yes (Other)
  Sender: FDA-Public Use
  Company Number: US-ROCHE-794907

PATIENT

DRUGS (6)
  1. SOTRET [Suspect]
     Indication: ACNE
     Route: 065
     Dates: start: 20071001
  2. SOTRET [Suspect]
     Route: 065
     Dates: start: 20080301
  3. ACCUTANE [Suspect]
     Route: 065
     Dates: start: 20080301
  4. SOTRET [Suspect]
     Route: 065
     Dates: start: 20090201
  5. ACCUTANE [Suspect]
     Route: 065
     Dates: start: 20090201
  6. ACCUTANE [Suspect]
     Indication: ACNE
     Route: 065
     Dates: start: 20071001

REACTIONS (1)
  - INJURY [None]
